FAERS Safety Report 17373573 (Version 4)
Quarter: 2020Q2

REPORT INFORMATION
  Report Type: Report from Study
  Country: US (occurrence: US)
  Receive Date: 20200206
  Receipt Date: 20200415
  Transmission Date: 20200713
  Serious: Yes (Death, Hospitalization)
  Sender: FDA-Public Use
  Company Number: US-EMD SERONO-9143361

PATIENT
  Age: 57 Year
  Sex: Female

DRUGS (4)
  1. REBIF [Suspect]
     Active Substance: INTERFERON BETA-1A
     Dosage: REBIF PREFILLED SYRINGE
     Route: 058
     Dates: start: 20190930
  2. REBIF [Suspect]
     Active Substance: INTERFERON BETA-1A
     Route: 058
  3. REBIF [Suspect]
     Active Substance: INTERFERON BETA-1A
     Route: 058
     Dates: end: 202003
  4. REBIF [Suspect]
     Active Substance: INTERFERON BETA-1A
     Indication: MULTIPLE SCLEROSIS
     Route: 058
     Dates: start: 20180425

REACTIONS (15)
  - Sepsis [Unknown]
  - Blood pressure decreased [Fatal]
  - Urinary tract infection [Unknown]
  - Infection [Unknown]
  - Confusional state [Unknown]
  - Cerebrovascular accident [Unknown]
  - Fall [Unknown]
  - Sedation [Unknown]
  - Cardiac dysfunction [Unknown]
  - Hepatic failure [Unknown]
  - Decubitus ulcer [Unknown]
  - Gait disturbance [Unknown]
  - Asthenia [Unknown]
  - Feeding disorder [Unknown]
  - Weight decreased [Unknown]

NARRATIVE: CASE EVENT DATE: 20191225
